FAERS Safety Report 24057443 (Version 1)
Quarter: 2024Q3

REPORT INFORMATION
  Report Type: Spontaneous
  Country: US (occurrence: US)
  Receive Date: 20240706
  Receipt Date: 20240706
  Transmission Date: 20241017
  Serious: Yes (Other)
  Sender: HETERO
  Company Number: US-HETERO-HET2024US01759

PATIENT
  Sex: Female

DRUGS (1)
  1. HYDRALAZINE [Suspect]
     Active Substance: HYDRALAZINE HYDROCHLORIDE
     Indication: Blood pressure abnormal
     Dosage: 25 MILLIGRAM
     Route: 065

REACTIONS (2)
  - Blood pressure increased [Recovering/Resolving]
  - Drug ineffective [Unknown]
